FAERS Safety Report 8016184-2 (Version None)
Quarter: 2011Q4

REPORT INFORMATION
  Report Type: 
  Country: None (occurrence: None)
  Receive Date: 20111230
  Receipt Date: 20111221
  Transmission Date: 20120403
  Serious: Yes (Hospitalization)
  Sender: FDA-Public Use
  Company Number: US-ACTELION-A-US2011-57921

PATIENT

DRUGS (2)
  1. CALCIUM CHANNEL BLOCKERS [Concomitant]
  2. TRACLEER [Suspect]
     Indication: PULMONARY ARTERIAL HYPERTENSION
     Dosage: UNK
     Route: 048
     Dates: start: 20030918

REACTIONS (3)
  - FALL [None]
  - ASTHENIA [None]
  - CARDIAC PACEMAKER INSERTION [None]
